FAERS Safety Report 10077194 (Version 1)
Quarter: 2014Q2

REPORT INFORMATION
  Report Type: Spontaneous
  Country: JP (occurrence: JP)
  Receive Date: 20140414
  Receipt Date: 20140414
  Transmission Date: 20141212
  Serious: Yes (Hospitalization, Other)
  Sender: FDA-Public Use
  Company Number: JP-WATSON-2014-07106

PATIENT
  Age: 53 Year
  Sex: Female
  Weight: 56 kg

DRUGS (2)
  1. MINOCYCLINE (UNKNOWN) [Suspect]
     Indication: PUSTULAR PSORIASIS
     Dosage: 100 MG, DAILY
     Route: 065
  2. BIOTIN [Concomitant]
     Indication: PUSTULAR PSORIASIS
     Dosage: UNK
     Route: 065

REACTIONS (1)
  - Polyarteritis nodosa [Recovered/Resolved]
